FAERS Safety Report 9971727 (Version 1)
Quarter: 2014Q1

REPORT INFORMATION
  Report Type: Report from Study
  Country: US (occurrence: US)
  Receive Date: 20140306
  Receipt Date: 20140306
  Transmission Date: 20141002
  Serious: No
  Sender: FDA-Public Use
  Company Number: US-ABBVIE-13P-163-1151112-00

PATIENT
  Age: 58 Year
  Sex: Female

DRUGS (11)
  1. HUMIRA [Suspect]
     Indication: RHEUMATOID ARTHRITIS
     Route: 058
     Dates: start: 20130810
  2. METHOTREXATE [Concomitant]
     Indication: RHEUMATOID ARTHRITIS
     Dosage: 6 EVERY SATURDAY
  3. FOLIC ACID [Concomitant]
     Indication: PRODUCT USED FOR UNKNOWN INDICATION
     Dosage: EXCEPT FOR SATURDAY
  4. AMITRIPTYLINE [Concomitant]
     Indication: PERIPHERAL SENSORY NEUROPATHY
     Dosage: 3 EVERY BEDTIME
  5. LORAZEPAM [Concomitant]
     Indication: MUSCLE TWITCHING
     Dosage: 0.5 MG AM AND AT BEDTIME
  6. LEVOTHYROXINE [Concomitant]
     Indication: HYPOTHYROIDISM
  7. SIMVASTATIN [Concomitant]
     Indication: BLOOD CHOLESTEROL INCREASED
     Dosage: 10 MG EVERY BEDTIME
  8. VITAMIN D [Concomitant]
     Indication: PRODUCT USED FOR UNKNOWN INDICATION
     Dosage: 2000 UNIT DAILY
  9. HYOSCYAMINE [Concomitant]
     Indication: ABDOMINAL RIGIDITY
     Dosage: 0.375 MG AM AND BEDTIME
  10. DEXILANT [Concomitant]
     Indication: ABDOMINAL PAIN
     Dosage: 60 MG DAILY
  11. ONDANSETRON HCL [Concomitant]
     Indication: NAUSEA

REACTIONS (6)
  - Fatigue [Not Recovered/Not Resolved]
  - Dyspnoea [Not Recovered/Not Resolved]
  - Headache [Not Recovered/Not Resolved]
  - Injection site erythema [Not Recovered/Not Resolved]
  - Injection site pain [Not Recovered/Not Resolved]
  - Injection site pruritus [Not Recovered/Not Resolved]
